FAERS Safety Report 8054219 (Version 3)
Quarter: 2012Q4

REPORT INFORMATION
  Report Type: 
  Country: US (occurrence: US)
  Receive Date: 20110726
  Receipt Date: 20120904
  Transmission Date: 20130627
  Serious: Yes (Hospitalization, Other)
  Sender: FDA-Public Use
  Company Number: US-BAYER-2011-064171

PATIENT
  Age: 26 Year
  Sex: Female
  Weight: 70.3 kg

DRUGS (1)
  1. YAZ [Suspect]
     Indication: ACNE
     Dosage: UNK
     Dates: start: 200712, end: 200807

REACTIONS (8)
  - Abortion spontaneous [None]
  - Stillbirth [None]
  - Portal vein thrombosis [None]
  - Gastrointestinal disorder [None]
  - Injury [None]
  - Abdominal pain [None]
  - Anxiety [Unknown]
  - Anhedonia [Unknown]
